FAERS Safety Report 13269660 (Version 3)
Quarter: 2017Q2

REPORT INFORMATION
  Report Type: Spontaneous
  Country: GB (occurrence: GB)
  Receive Date: 20170224
  Receipt Date: 20170419
  Transmission Date: 20170830
  Serious: Yes (Hospitalization, Other)
  Sender: FDA-Public Use
  Company Number: PHFR2017GB001335

PATIENT
  Sex: Female
  Weight: 73 kg

DRUGS (6)
  1. LAMOTRIGINE. [Concomitant]
     Active Substance: LAMOTRIGINE
     Indication: PRODUCT USED FOR UNKNOWN INDICATION
     Route: 065
  2. TEGRETOL [Suspect]
     Active Substance: CARBAMAZEPINE
     Indication: EPILEPSY
     Dosage: 400 MG, BID
     Route: 048
     Dates: start: 1990, end: 2005
  3. TEGRETOL [Suspect]
     Active Substance: CARBAMAZEPINE
     Indication: EPILEPSY
     Dosage: 200 MG, BID
     Route: 048
     Dates: start: 1990, end: 2005
  4. GABAPENTIN. [Concomitant]
     Active Substance: GABAPENTIN
     Indication: PRODUCT USED FOR UNKNOWN INDICATION
     Route: 065
  5. EPILIM [Suspect]
     Active Substance: VALPROATE SODIUM
     Indication: PRODUCT USED FOR UNKNOWN INDICATION
     Route: 065
  6. KEPPRA [Concomitant]
     Active Substance: LEVETIRACETAM
     Indication: PRODUCT USED FOR UNKNOWN INDICATION
     Route: 065

REACTIONS (15)
  - Depression [Recovered/Resolved]
  - Confusional state [Recovered/Resolved]
  - Osteoporosis [Recovered/Resolved]
  - Personality disorder [Recovered/Resolved]
  - Overdose [Unknown]
  - Mania [Recovered/Resolved]
  - Decreased appetite [Recovered/Resolved]
  - Dizziness [Recovered/Resolved]
  - Ocular icterus [Not Recovered/Not Resolved]
  - Dry mouth [Recovered/Resolved]
  - Suicide attempt [Recovered/Resolved]
  - Speech disorder [Recovered/Resolved]
  - Disorganised speech [Recovered/Resolved]
  - Seizure [Not Recovered/Not Resolved]
  - Renal haemorrhage [Recovered/Resolved]
